FAERS Safety Report 6264299-1 (Version None)
Quarter: 2009Q3

REPORT INFORMATION
  Report Type: 
  Country: None (occurrence: None)
  Receive Date: 20090710
  Receipt Date: 20090630
  Transmission Date: 20100115
  Serious: Yes (Death, Hospitalization)
  Sender: FDA-Public Use
  Company Number: A0731312A

PATIENT
  Age: 57 Year
  Sex: Male

DRUGS (11)
  1. AVANDIA [Suspect]
     Dosage: 4MG TWICE PER DAY
     Route: 048
     Dates: end: 20070520
  2. METOPROLOL [Concomitant]
  3. CLONIDINE [Concomitant]
  4. GLYBURIDE [Concomitant]
  5. ATACAND [Concomitant]
  6. LIPITOR [Concomitant]
  7. FUROSEMIDE [Concomitant]
  8. METFORMIN HCL [Concomitant]
  9. LISINOPRIL [Concomitant]
  10. NORVASC [Concomitant]
  11. HUMULIN R [Concomitant]

REACTIONS (7)
  - ATRIAL FIBRILLATION [None]
  - CEREBROVASCULAR ACCIDENT [None]
  - DEATH [None]
  - INJURY [None]
  - INTRACARDIAC THROMBUS [None]
  - OBESITY [None]
  - PAIN [None]
